FAERS Safety Report 11344821 (Version 1)
Quarter: 2015Q3

REPORT INFORMATION
  Report Type: Spontaneous
  Country: US (occurrence: US)
  Receive Date: 20150806
  Receipt Date: 20150806
  Transmission Date: 20151125
  Serious: No
  Sender: FDA-Public Use
  Company Number: US-BAYER-2015-393082

PATIENT
  Sex: Female

DRUGS (1)
  1. MIRENA [Suspect]
     Active Substance: LEVONORGESTREL
     Indication: CONTRACEPTION
     Dosage: 20 MCG/24HR, CONT
     Route: 015
     Dates: end: 20150804

REACTIONS (8)
  - Abdominal pain lower [None]
  - Mood swings [None]
  - Abdominal distension [None]
  - Headache [None]
  - Alopecia [None]
  - Depression [None]
  - Thinking abnormal [None]
  - Nausea [None]
